FAERS Safety Report 25186559 (Version 1)
Quarter: 2025Q2

REPORT INFORMATION
  Report Type: Spontaneous
  Country: US (occurrence: US)
  Receive Date: 20250411
  Receipt Date: 20250411
  Transmission Date: 20250717
  Serious: Yes (Other)
  Sender: GRAVITI PHARMACEUTICALS
  Company Number: US-GRAVITIPHARMA-GRA-2503-US-LIT-0209

PATIENT
  Age: 79 Year
  Sex: Male

DRUGS (2)
  1. ATORVASTATIN CALCIUM [Suspect]
     Active Substance: ATORVASTATIN CALCIUM
     Indication: Hyperlipidaemia
     Route: 065
  2. EZETIMIBE [Suspect]
     Active Substance: EZETIMIBE
     Indication: Hyperlipidaemia
     Route: 065

REACTIONS (4)
  - Neuropathy peripheral [Unknown]
  - Low density lipoprotein increased [Recovered/Resolved]
  - Blood cholesterol increased [Recovered/Resolved]
  - Rebound effect [Recovered/Resolved]
